FAERS Safety Report 25140917 (Version 1)
Quarter: 2025Q2

REPORT INFORMATION
  Report Type: Spontaneous
  Country: US (occurrence: None)
  Receive Date: 20250330
  Receipt Date: 20250330
  Transmission Date: 20250716
  Serious: No
  Sender: FDA-CTU
  Company Number: None

PATIENT
  Age: 41 Year
  Sex: Female
  Weight: 76.5 kg

DRUGS (3)
  1. MICONAZOLE 3 [Suspect]
     Active Substance: MICONAZOLE NITRATE
     Indication: Fungal infection
     Dosage: 3 3 PREFILLED APPLIC  AT BEDTIME VAGINAL
     Route: 067
     Dates: start: 20250330, end: 20250330
  2. SYNTHROID [Concomitant]
     Active Substance: LEVOTHYROXINE SODIUM
  3. CETIRIZINE HYDROCHLORIDE [Concomitant]
     Active Substance: CETIRIZINE HYDROCHLORIDE

REACTIONS (5)
  - Vulvovaginal pain [None]
  - Vulvovaginal pruritus [None]
  - Chest pain [None]
  - Chest discomfort [None]
  - Nausea [None]

NARRATIVE: CASE EVENT DATE: 20250330
